FAERS Safety Report 5990264-5 (Version None)
Quarter: 2008Q4

REPORT INFORMATION
  Report Type: 
  Country: None (occurrence: None)
  Receive Date: 20081211
  Receipt Date: 20081202
  Transmission Date: 20090506
  Serious: Yes (Other)
  Sender: FDA-Public Use
  Company Number: DE-BAYER-200824915GPV

PATIENT
  Age: 38 Year
  Sex: Female
  Weight: 69 kg

DRUGS (1)
  1. DROSPIRENONE AND ETHINYL ESTRADIOL [Suspect]
     Indication: DRUG USE FOR UNKNOWN INDICATION
     Route: 048
     Dates: start: 19980101, end: 20080831

REACTIONS (2)
  - OTOSCLEROSIS [None]
  - SUDDEN HEARING LOSS [None]
